FAERS Safety Report 4981651-2 (Version None)
Quarter: 2006Q2

REPORT INFORMATION
  Report Type: 
  Country: None (occurrence: None)
  Receive Date: 20060420
  Receipt Date: 20060420
  Transmission Date: 20061013
  Serious: Yes (Hospitalization)
  Sender: FDA-Public Use
  Company Number: None

PATIENT
  Age: 54 Year
  Sex: Female
  Weight: 81 kg

DRUGS (12)
  1. WARFARIN SODIUM [Suspect]
     Indication: MITRAL VALVE REPLACEMENT
     Dosage: 3 MG MW + SAT 2 MG SUN TU TH,F
  2. COREG [Concomitant]
  3. AVANDIA [Concomitant]
  4. GLIPIZIDE [Concomitant]
  5. LISINOPRIL [Concomitant]
  6. DIGOXIN [Concomitant]
  7. ZOCOR [Concomitant]
  8. AMIODARONE HCL [Concomitant]
  9. SPIRONOLACTONE [Concomitant]
  10. SINGULAIR [Concomitant]
  11. ALBUTEROL [Concomitant]
  12. LASIX [Concomitant]

REACTIONS (2)
  - DIZZINESS [None]
  - EPISTAXIS [None]
